FAERS Safety Report 4696082-2 (Version None)
Quarter: 2005Q2

REPORT INFORMATION
  Report Type: 
  Country: None (occurrence: None)
  Receive Date: 20050621
  Receipt Date: 20050610
  Transmission Date: 20051028
  Serious: Yes (Other)
  Sender: FDA-Public Use
  Company Number: JP-ROCHE-407233

PATIENT
  Age: 58 Year
  Sex: Male
  Weight: 87 kg

DRUGS (3)
  1. HORIZON [Suspect]
     Indication: DRUG USE FOR UNKNOWN INDICATION
     Dosage: TAKEN 1 HOUR AND 30 MINUTES PRIOR TO SURGERY.
     Route: 048
  2. GLYBURIDE [Concomitant]
  3. PROPOFOL [Concomitant]
     Dosage: RECEIVED 50 MINUTES AFTER START OF SURGERY
     Route: 042

REACTIONS (8)
  - BLOOD PRESSURE SYSTOLIC DECREASED [None]
  - DYSPNOEA [None]
  - HYPOGLOSSAL NERVE DISORDER [None]
  - INADEQUATE ANALGESIA [None]
  - MEDICAL DEVICE COMPLICATION [None]
  - OXYGEN SATURATION DECREASED [None]
  - SPEECH DISORDER [None]
  - TONGUE PARALYSIS [None]
